FAERS Safety Report 9417084 (Version 7)
Quarter: 2013Q4

REPORT INFORMATION
  Report Type: Report from Study
  Country: IT (occurrence: IT)
  Receive Date: 20130724
  Receipt Date: 20131216
  Transmission Date: 20140711
  Serious: Yes (Death, Hospitalization)
  Sender: FDA-Public Use
  Company Number: IT-ROCHE-1249694

PATIENT
  Age: 66 Year
  Sex: Female
  Weight: 60 kg

DRUGS (41)
  1. RHUPH20/RITUXIMAB [Suspect]
     Indication: B-CELL LYMPHOMA
     Dosage: LAST DOSE TAKEN PRIOR TO SAE ON 20/JUN/2013 AT A DOSE OF 1400 MG
     Route: 058
     Dates: start: 20110707
  2. RITUXIMAB [Suspect]
     Indication: B-CELL LYMPHOMA
     Route: 042
  3. BACTRIM [Concomitant]
     Indication: INFECTION PROPHYLAXIS
     Route: 065
     Dates: start: 20110706
  4. CHLORPHENAMINE [Concomitant]
     Indication: PREMEDICATION
     Route: 065
     Dates: start: 20120327, end: 20120327
  5. CHLORPHENAMINE [Concomitant]
     Route: 065
     Dates: start: 20120522, end: 20120522
  6. CHLORPHENAMINE [Concomitant]
     Route: 065
     Dates: start: 20120712, end: 20120712
  7. CHLORPHENAMINE [Concomitant]
     Route: 065
     Dates: start: 20120906, end: 20120906
  8. CHLORPHENAMINE [Concomitant]
     Route: 065
     Dates: start: 20121031, end: 20121031
  9. LANSOPRAZOLE [Concomitant]
     Indication: PROPHYLAXIS
     Route: 065
     Dates: start: 20110706, end: 20111206
  10. LANSOPRAZOLE [Concomitant]
     Indication: DYSPEPSIA
     Route: 065
     Dates: start: 20120131, end: 20120216
  11. LANSOPRAZOLE [Concomitant]
     Route: 065
     Dates: start: 20130418
  12. PARACETAMOL [Concomitant]
     Indication: PREMEDICATION
     Route: 065
     Dates: start: 20110707, end: 20130620
  13. PARACETAMOL [Concomitant]
     Route: 065
     Dates: start: 20120327, end: 20120327
  14. PARACETAMOL [Concomitant]
     Route: 065
     Dates: start: 20120522, end: 20120522
  15. PARACETAMOL [Concomitant]
     Route: 065
     Dates: start: 20120712, end: 20120712
  16. PARACETAMOL [Concomitant]
     Route: 065
     Dates: start: 20120906, end: 20120906
  17. PARACETAMOL [Concomitant]
     Route: 065
     Dates: start: 20121031, end: 20121031
  18. TRIMETON (ITALY) [Concomitant]
     Indication: PREMEDICATION
     Route: 065
     Dates: start: 20110707, end: 20130620
  19. DIBASE [Concomitant]
     Route: 065
     Dates: start: 20120522
  20. DIFOSFONAL [Concomitant]
     Route: 065
     Dates: start: 20130418
  21. DELORAZEPAM [Concomitant]
     Indication: ANXIETY
     Route: 065
     Dates: start: 20130806
  22. DECADRON [Concomitant]
     Route: 065
     Dates: start: 20130713, end: 20130720
  23. ALLOPURINOL [Concomitant]
     Route: 065
     Dates: start: 20110706, end: 20111104
  24. PLACK OUT [Concomitant]
     Route: 065
     Dates: start: 20110719, end: 20111206
  25. TEVAGRASTIM [Concomitant]
     Indication: NEUTROPENIA
     Route: 065
     Dates: start: 20110719, end: 20110722
  26. TEVAGRASTIM [Concomitant]
     Indication: LEUKOPENIA
     Route: 065
     Dates: start: 20110801, end: 20110803
  27. TEVAGRASTIM [Concomitant]
     Route: 065
     Dates: start: 20110809, end: 20110810
  28. TEVAGRASTIM [Concomitant]
     Route: 065
     Dates: start: 20110830, end: 20110904
  29. TEVAGRASTIM [Concomitant]
     Route: 065
     Dates: start: 20110920, end: 20110925
  30. TEVAGRASTIM [Concomitant]
     Route: 065
     Dates: start: 20111012, end: 20111019
  31. TEVAGRASTIM [Concomitant]
     Route: 065
     Dates: start: 20111104, end: 20111110
  32. SOLU-MEDROL [Concomitant]
     Indication: CHEMOTHERAPY
     Route: 065
     Dates: start: 20110823, end: 20110827
  33. SOLU-MEDROL [Concomitant]
     Route: 065
     Dates: start: 20110913, end: 20110917
  34. SOLU-MEDROL [Concomitant]
     Route: 065
     Dates: start: 20111004, end: 20111008
  35. SOLU-MEDROL [Concomitant]
     Route: 065
     Dates: start: 20111025, end: 20111029
  36. DIFLUCAN [Concomitant]
     Indication: VULVOVAGINAL CANDIDIASIS
     Route: 065
     Dates: start: 20111004, end: 20111025
  37. BRUFEN [Concomitant]
     Indication: BACK PAIN
     Route: 065
     Dates: start: 20111114, end: 20111206
  38. PLASIL [Concomitant]
     Indication: DYSPEPSIA
     Route: 065
     Dates: start: 20120131, end: 20120216
  39. RIOPAN (ITALY) [Concomitant]
     Indication: DYSPEPSIA
     Route: 065
     Dates: start: 20120131, end: 20120216
  40. LOCOIDON [Concomitant]
     Indication: ERYTHEMA
     Route: 065
     Dates: start: 20120911, end: 20121031
  41. ZOFRAN [Concomitant]
     Route: 065
     Dates: start: 20110706, end: 20111025

REACTIONS (6)
  - Creutzfeldt-Jakob disease [Fatal]
  - Dysarthria [Recovered/Resolved]
  - Cognitive disorder [Recovered/Resolved]
  - Nervous system disorder [Recovered/Resolved]
  - Disturbance in attention [Recovered/Resolved]
  - Memory impairment [Recovered/Resolved]
